FAERS Safety Report 10413819 (Version 2)
Quarter: 2014Q3

REPORT INFORMATION
  Report Type: Spontaneous
  Country: US (occurrence: US)
  Receive Date: 20140827
  Receipt Date: 20140827
  Transmission Date: 20150326
  Serious: Yes (Hospitalization, Disabling, Other)
  Sender: FDA-Public Use
  Company Number: US-009507513-2008-188046-NL

PATIENT
  Sex: Female
  Weight: 92.99 kg

DRUGS (4)
  1. ORTHO TRI CYCLEN LO [Suspect]
     Active Substance: ETHINYL ESTRADIOL\NORGESTIMATE
     Indication: PRODUCT USED FOR UNKNOWN INDICATION
     Route: 048
     Dates: start: 20050803, end: 20060712
  2. ORTHO TRI CYCLEN LO [Suspect]
     Active Substance: ETHINYL ESTRADIOL\NORGESTIMATE
     Dates: start: 200612
  3. NUVARING [Suspect]
     Active Substance: ETHINYL ESTRADIOL\ETONOGESTREL
     Indication: CONTRACEPTION
     Dosage: CONTINUING: NO
     Route: 067
     Dates: start: 20060913, end: 20061211
  4. POLYMYXIN B SULFATE (+) TRIMETHOPRIM [Concomitant]
     Indication: PRODUCT USED FOR UNKNOWN INDICATION
     Dosage: 1-2 IN RIGHT EYE Q 3-6 HOURS FOR 7-10 DAYS
     Route: 031

REACTIONS (13)
  - Adjustment disorder with depressed mood [Unknown]
  - Folliculitis [Unknown]
  - Bone contusion [Unknown]
  - Pulmonary embolism [Recovered/Resolved]
  - Ligament sprain [Unknown]
  - Constipation [Unknown]
  - Iron deficiency anaemia [Unknown]
  - Ligament injury [Unknown]
  - Urinary tract infection [Unknown]
  - Vena cava filter insertion [Recovered/Resolved]
  - Ligament rupture [Unknown]
  - Deep vein thrombosis [Not Recovered/Not Resolved]
  - Headache [Unknown]

NARRATIVE: CASE EVENT DATE: 200609
